FAERS Safety Report 5721299-5 (Version None)
Quarter: 2008Q2

REPORT INFORMATION
  Report Type: 
  Country: None (occurrence: None)
  Receive Date: 20080424
  Receipt Date: 20080417
  Transmission Date: 20081010
  Serious: Yes (Hospitalization, Disabling)
  Sender: FDA-Public Use
  Company Number: 100#08#2008-02217

PATIENT
  Age: 16 Year
  Sex: Female

DRUGS (2)
  1. LITHIUM CARBONATE [Suspect]
     Indication: MANIA
     Dosage: INCREASED UP TO 1200 MG
  2. OLANZAPINE [Concomitant]

REACTIONS (17)
  - BLOOD UREA INCREASED [None]
  - CATATONIA [None]
  - DECREASED APPETITE [None]
  - DEHYDRATION [None]
  - EXTENSOR PLANTAR RESPONSE [None]
  - HYPERREFLEXIA [None]
  - IMMOBILE [None]
  - MUTISM [None]
  - NEGATIVISM [None]
  - ORAL INTAKE REDUCED [None]
  - SPEECH DISORDER [None]
  - STARING [None]
  - STUPOR [None]
  - THERAPEUTIC AGENT TOXICITY [None]
  - TREMOR [None]
  - WAXY FLEXIBILITY [None]
  - WHITE BLOOD CELL COUNT INCREASED [None]
